FAERS Safety Report 5900103-6 (Version None)
Quarter: 2008Q3

REPORT INFORMATION
  Report Type: 
  Country: None (occurrence: None)
  Receive Date: 20080926
  Receipt Date: 20080918
  Transmission Date: 20090109
  Serious: Yes (Other)
  Sender: FDA-Public Use
  Company Number: US-JNJCH-2008024260

PATIENT
  Age: 17 Year
  Sex: Male
  Weight: 81.6 kg

DRUGS (1)
  1. DRAMAMINE [Suspect]
     Indication: EUPHORIC MOOD
     Dosage: TEXT:7 TABLETS
     Route: 048

REACTIONS (4)
  - HALLUCINATION, VISUAL [None]
  - INAPPROPRIATE AFFECT [None]
  - INCORRECT DOSE ADMINISTERED [None]
  - INTENTIONAL DRUG MISUSE [None]
